FAERS Safety Report 4618559-8 (Version None)
Quarter: 2005Q1

REPORT INFORMATION
  Report Type: 
  Country: None (occurrence: None)
  Receive Date: 20050323
  Receipt Date: 20050309
  Transmission Date: 20050727
  Serious: Yes (Hospitalization, Other)
  Sender: FDA-Public Use
  Company Number: 2005044269

PATIENT
  Age: 73 Year
  Sex: Male
  Weight: 65 kg

DRUGS (1)
  1. VALDECOXIB [Suspect]
     Indication: PAIN
     Dosage: 40 MG (40 MG, 1 IN 1 D), ORAL
     Route: 048
     Dates: start: 20050921, end: 20050306

REACTIONS (4)
  - DIARRHOEA [None]
  - HAEMOGLOBIN DECREASED [None]
  - PALLOR [None]
  - RENAL FAILURE ACUTE [None]
